FAERS Safety Report 5005301-4 (Version None)
Quarter: 2006Q2

REPORT INFORMATION
  Report Type: 
  Country: None (occurrence: None)
  Receive Date: 20060515
  Receipt Date: 20060601
  Transmission Date: 20061013
  Serious: Yes (Disabling)
  Sender: FDA-Public Use
  Company Number: 200612889BWH

PATIENT
  Age: 74 Year
  Sex: Female
  Weight: 48.5349 kg

DRUGS (2)
  1. NEXAVAR [Suspect]
     Indication: METASTASES TO LIVER
     Dosage: 400 MG, BID, ORAL
     Route: 048
     Dates: start: 20060413
  2. NEXAVAR [Suspect]
     Indication: RENAL CELL CARCINOMA STAGE UNSPECIFIED
     Dosage: 400 MG, BID, ORAL
     Route: 048
     Dates: start: 20060413

REACTIONS (4)
  - ABASIA [None]
  - BLOOD PRESSURE INCREASED [None]
  - GOUT [None]
  - NAUSEA [None]
